FAERS Safety Report 6038919-0 (Version None)
Quarter: 2009Q1

REPORT INFORMATION
  Report Type: 
  Country: None (occurrence: None)
  Receive Date: 20090114
  Receipt Date: 20090114
  Transmission Date: 20090719
  Serious: Yes (Life-Threatening, Hospitalization)
  Sender: FDA-Public Use
  Company Number: None

PATIENT
  Age: 19 Year
  Sex: Female
  Weight: 77.1115 kg

DRUGS (2)
  1. PHENTERMINE [Suspect]
     Indication: WEIGHT CONTROL
     Dosage: QD PO APPROXIMATELY 2 MONTHS
     Route: 048
     Dates: start: 20080401, end: 20080701
  2. PROZAC [Concomitant]

REACTIONS (2)
  - INFLUENZA LIKE ILLNESS [None]
  - RENAL FAILURE ACUTE [None]
